FAERS Safety Report 5305904-3 (Version None)
Quarter: 2007Q2

REPORT INFORMATION
  Report Type: 
  Country: None (occurrence: None)
  Receive Date: 20070424
  Receipt Date: 20070423
  Transmission Date: 20071010
  Serious: Yes (Other)
  Sender: FDA-Public Use
  Company Number: US-GLAXOSMITHKLINE-A0648384A

PATIENT
  Age: 76 Year
  Sex: Female

DRUGS (4)
  1. VALTREX [Suspect]
     Indication: HERPES ZOSTER
     Dosage: 1G THREE TIMES PER DAY
     Route: 048
     Dates: start: 20070409
  2. HORMONE REPLACEMENT THERAPY [Concomitant]
  3. UNKNOWN MEDICATION [Concomitant]
  4. THYROID TAB [Concomitant]

REACTIONS (5)
  - ARTHRITIS [None]
  - CHEST PAIN [None]
  - FACIAL PAIN [None]
  - FATIGUE [None]
  - HEADACHE [None]
